FAERS Safety Report 5055118-X (Version None)
Quarter: 2006Q3

REPORT INFORMATION
  Report Type: 
  Country: None (occurrence: None)
  Receive Date: 20060714
  Receipt Date: 20060706
  Transmission Date: 20061208
  Serious: Yes (Other)
  Sender: FDA-Public Use
  Company Number: FRWYE125009MAY03

PATIENT
  Age: 40 Year
  Sex: Female

DRUGS (3)
  1. SIROLIMUS (SIROLIMUS) [Suspect]
     Indication: PROPHYLAXIS AGAINST TRANSPLANT REJECTION
     Dosage: 15 MG DAILY FOR 2 DAYS AND THEN 8 MG DAILY ORAL
     Route: 048
     Dates: start: 20021024, end: 20021211
  2. ATG (ANTILYMPHOCYTE IMMUNOGLOBULIN (HORSE)) [Concomitant]
  3. MYCOPHENOLATE MOFETIL [Concomitant]

REACTIONS (11)
  - ANAEMIA [None]
  - ANASTOMOTIC COMPLICATION [None]
  - ARTERIOVENOUS FISTULA [None]
  - CONDITION AGGRAVATED [None]
  - EFFUSION [None]
  - HAEMODIALYSIS [None]
  - INFARCTION [None]
  - KIDNEY FIBROSIS [None]
  - KIDNEY TRANSPLANT REJECTION [None]
  - PERITONEAL HAEMATOMA [None]
  - RENAL TUBULAR NECROSIS [None]
